FAERS Safety Report 9715395 (Version 3)
Quarter: 2014Q2

REPORT INFORMATION
  Report Type: Report from Study
  Country: BR (occurrence: BR)
  Receive Date: 20131127
  Receipt Date: 20140616
  Transmission Date: 20141212
  Serious: Yes (Other)
  Sender: FDA-Public Use
  Company Number: BR-BIOGENIDEC-2013BI057056

PATIENT
  Age: 31 Year
  Sex: Female

DRUGS (6)
  1. AVONEX [Suspect]
     Indication: MULTIPLE SCLEROSIS
     Route: 030
     Dates: start: 20120731, end: 201303
  2. FOLIC ACID [Concomitant]
     Dates: start: 201302, end: 201306
  3. ABLOK (ATENOLOL AND CHLORTHALIDONE) [Concomitant]
     Indication: ARRHYTHMIA
  4. ABLOK (ATENOLOL AND CHLORTHALIDONE) [Concomitant]
     Indication: ARRHYTHMIA
  5. PARACETAMOL [Concomitant]
  6. PLASIL [Concomitant]

REACTIONS (1)
  - Oligohydramnios [Unknown]
